FAERS Safety Report 5709815-0 (Version None)
Quarter: 2008Q2

REPORT INFORMATION
  Report Type: 
  Country: None (occurrence: None)
  Receive Date: 20080418
  Receipt Date: 20080409
  Transmission Date: 20081010
  Serious: Yes (Death)
  Sender: FDA-Public Use
  Company Number: US-AMGEN-US214371

PATIENT
  Sex: Male

DRUGS (7)
  1. PALIFERMIN [Suspect]
     Indication: STOMATITIS
     Route: 042
     Dates: start: 20060126, end: 20070302
  2. LISINOPRIL [Concomitant]
     Route: 065
     Dates: start: 20070118
  3. HYDROXYZINE [Concomitant]
     Route: 065
     Dates: start: 20070118
  4. LOVASTATIN [Concomitant]
     Route: 065
     Dates: start: 20070118
  5. TRAZODONE HCL [Concomitant]
     Route: 065
     Dates: start: 20070118
  6. HYDROCODONE BITARTRATE [Concomitant]
     Route: 065
     Dates: start: 20070118
  7. RADIATION THERAPY [Concomitant]
     Route: 050
     Dates: start: 20070129, end: 20070307

REACTIONS (1)
  - TRACHEOSTOMY MALFUNCTION [None]
